FAERS Safety Report 13121922 (Version 1)
Quarter: 2017Q1

REPORT INFORMATION
  Report Type: Spontaneous
  Country: EG (occurrence: EG)
  Receive Date: 20170117
  Receipt Date: 20170117
  Transmission Date: 20170428
  Serious: Yes (Other)
  Sender: FDA-Public Use
  Company Number: EG-PFIZER INC-2016270155

PATIENT
  Age: 30 Year
  Sex: Female

DRUGS (1)
  1. DOSTINEX [Suspect]
     Active Substance: CABERGOLINE
     Indication: LACTATION INHIBITION THERAPY
     Dosage: HALF TABLET, 2X/DAY
     Route: 048
     Dates: start: 20160415, end: 20160416

REACTIONS (4)
  - Hypotension [Recovered/Resolved]
  - Vomiting [Recovered/Resolved]
  - Vertigo [Recovered/Resolved]
  - Amniotic fluid volume decreased [Unknown]

NARRATIVE: CASE EVENT DATE: 2016
